FAERS Safety Report 4705074-6 (Version None)
Quarter: 2005Q3

REPORT INFORMATION
  Report Type: 
  Country: None (occurrence: None)
  Receive Date: 20050701
  Receipt Date: 20050616
  Transmission Date: 20060218
  Serious: Yes (Death)
  Sender: FDA-Public Use
  Company Number: FR-SANOFI-SYNTHELABO-A02200501719

PATIENT
  Sex: Male

DRUGS (4)
  1. STILNOX [Suspect]
     Indication: DRUG USE FOR UNKNOWN INDICATION
     Dosage: UNK
     Route: 048
     Dates: start: 20031013
  2. SUBUTEX [Suspect]
     Dosage: UNK
     Route: 048
  3. METHADONE [Suspect]
     Dosage: UNK
     Route: 048
  4. VALIUM [Suspect]
     Dosage: UNK
     Route: 065
     Dates: start: 20031013

REACTIONS (1)
  - COMPLETED SUICIDE [None]
